FAERS Safety Report 12428120 (Version 1)
Quarter: 2016Q2

REPORT INFORMATION
  Report Type: Spontaneous
  Country: US (occurrence: None)
  Receive Date: 20160601
  Receipt Date: 20160601
  Transmission Date: 20160815
  Serious: Yes (Hospitalization)
  Sender: FDA-Public Use
  Company Number: None

PATIENT
  Age: 56 Year
  Sex: Female

DRUGS (2)
  1. H.P. ACTHAR [Suspect]
     Active Substance: CORTICOTROPIN
  2. CLINDAMYCIN [Concomitant]
     Active Substance: CLINDAMYCIN\CLINDAMYCIN PHOSPHATE
     Dosage: 80U 3 TIMES WEEK SQ
     Route: 058

REACTIONS (3)
  - Urticaria [None]
  - Drug interaction [None]
  - Pruritus [None]

NARRATIVE: CASE EVENT DATE: 20160531
